FAERS Safety Report 23601347 (Version 2)
Quarter: 2025Q1

REPORT INFORMATION
  Report Type: Report from Study
  Country: CA (occurrence: CA)
  Receive Date: 20240306
  Receipt Date: 20250312
  Transmission Date: 20250408
  Serious: Yes (Hospitalization, Other)
  Sender: SANDOZ
  Company Number: CA-002147023-NVSC2023CA061265

PATIENT
  Sex: Male

DRUGS (2)
  1. HYRIMOZ [Suspect]
     Active Substance: ADALIMUMAB-ADAZ
     Dosage: 40 MG, Q4W
     Route: 058
     Dates: start: 20240209
  2. HYRIMOZ [Suspect]
     Active Substance: ADALIMUMAB-ADAZ
     Indication: Ankylosing spondylitis
     Route: 058
     Dates: start: 20220807

REACTIONS (7)
  - Limb injury [Unknown]
  - Shoulder operation [Not Recovered/Not Resolved]
  - General physical health deterioration [Unknown]
  - Rotator cuff syndrome [Unknown]
  - Bone disorder [Unknown]
  - Musculoskeletal discomfort [Recovering/Resolving]
  - Off label use [Unknown]
